FAERS Safety Report 19880353 (Version 3)
Quarter: 2021Q4

REPORT INFORMATION
  Report Type: Spontaneous
  Country: MT (occurrence: MT)
  Receive Date: 20210924
  Receipt Date: 20211008
  Transmission Date: 20220303
  Serious: Yes (Other)
  Sender: FDA-Public Use
  Company Number: MT-PFIZER INC-202101232084

PATIENT
  Age: 11 Year
  Sex: Male

DRUGS (4)
  1. MEROPENEM [Suspect]
     Active Substance: MEROPENEM
     Indication: Klebsiella infection
     Dosage: 40 MG/KG, 3X/DAY
     Route: 042
  2. TEICOPLANIN [Concomitant]
     Active Substance: TEICOPLANIN
     Indication: Klebsiella infection
     Dosage: UNK (ON DAY 20 POSTAPPENDECTOMY
  3. METRONIDAZOLE [Concomitant]
     Active Substance: METRONIDAZOLE
     Indication: Abdominal sepsis
     Dosage: UNK
     Route: 042
  4. CEFOTAXIME [Concomitant]
     Active Substance: CEFOTAXIME SODIUM
     Indication: Abdominal sepsis
     Dosage: UNK
     Route: 042

REACTIONS (4)
  - Thrombocytopenia [Recovered/Resolved]
  - Rash maculo-papular [Recovered/Resolved]
  - Petechiae [Recovered/Resolved]
  - Hypersensitivity [Recovered/Resolved]
